FAERS Safety Report 13982353 (Version 1)
Quarter: 2017Q3

REPORT INFORMATION
  Report Type: Spontaneous
  Country: US (occurrence: US)
  Receive Date: 20170918
  Receipt Date: 20170918
  Transmission Date: 20171128
  Serious: Yes (Other)
  Sender: FDA-Public Use
  Company Number: US-BAYER-2017-171374

PATIENT
  Age: 14 Month
  Sex: Male
  Weight: 87.98 kg

DRUGS (3)
  1. MIRALAX [Suspect]
     Active Substance: POLYETHYLENE GLYCOL 3350
     Indication: GASTROINTESTINAL DISORDER
     Dosage: UNK
     Route: 048
     Dates: start: 1999, end: 2006
  2. MIRALAX [Suspect]
     Active Substance: POLYETHYLENE GLYCOL 3350
     Indication: GASTROINTESTINAL DISORDER
     Dosage: 2 DF, TID
     Route: 048
     Dates: start: 1999, end: 1999
  3. PROPULSID [Concomitant]
     Active Substance: CISAPRIDE

REACTIONS (4)
  - Product use issue [None]
  - Inappropriate prescribing [Unknown]
  - Constipation [Unknown]
  - Incorrect dosage administered [Unknown]

NARRATIVE: CASE EVENT DATE: 1999
